FAERS Safety Report 7573657-4 (Version None)
Quarter: 2011Q2

REPORT INFORMATION
  Report Type: 
  Country: None (occurrence: None)
  Receive Date: 20110621
  Receipt Date: 20110602
  Transmission Date: 20111010
  Serious: Yes (Life-Threatening, Hospitalization)
  Sender: FDA-Public Use
  Company Number: 20110436

PATIENT
  Age: 62 Year
  Sex: Female

DRUGS (2)
  1. SUCCINYLCHOLINE CHLORIDE [Suspect]
     Indication: PRODUCT USED FOR UNKNOWN INDICATION
  2. ONDANSETRON [Suspect]
     Indication: PRODUCT USED FOR UNKNOWN INDICATION

REACTIONS (5)
  - VENTRICULAR TACHYCARDIA [None]
  - INCISION SITE HAEMORRHAGE [None]
  - VENTRICULAR FIBRILLATION [None]
  - CARDIAC ARREST [None]
  - SINUS BRADYCARDIA [None]
